FAERS Safety Report 7136460-5 (Version None)
Quarter: 2010Q4

REPORT INFORMATION
  Report Type: 
  Country: None (occurrence: None)
  Receive Date: 20101206
  Receipt Date: 20050203
  Transmission Date: 20110411
  Serious: Yes (Death)
  Sender: FDA-Public Use
  Company Number: DE-ACTELION-A-CH2005-08799

PATIENT
  Sex: Female

DRUGS (1)
  1. BOSENTAN TABLET 125 MG EU [Suspect]
     Indication: PULMONARY HYPERTENSION
     Dosage: 125 MG, BID
     Route: 048
     Dates: start: 20030518, end: 20050105

REACTIONS (2)
  - DEATH [None]
  - NASOPHARYNGITIS [None]
